FAERS Safety Report 7089843-6 (Version None)
Quarter: 2010Q4

REPORT INFORMATION
  Report Type: 
  Country: None (occurrence: None)
  Receive Date: 20101108
  Receipt Date: 20101026
  Transmission Date: 20110411
  Serious: Yes (Other)
  Sender: FDA-Public Use
  Company Number: US-AMGEN-TCS434270

PATIENT

DRUGS (3)
  1. ENBREL [Suspect]
     Indication: JUVENILE ARTHRITIS
     Dosage: 50 MG, QWK
     Route: 058
     Dates: start: 20060101
  2. METHOTREXATE [Concomitant]
     Indication: ARTHRITIS
     Dosage: 10 MG, QWK
     Route: 048
     Dates: start: 20050101
  3. NAPROSYN [Concomitant]
     Indication: ARTHRITIS
     Dosage: 375 MG, BID
     Route: 048
     Dates: start: 20050101

REACTIONS (2)
  - DEPRESSION [None]
  - DYSMENORRHOEA [None]
